FAERS Safety Report 25352894 (Version 1)
Quarter: 2025Q2

REPORT INFORMATION
  Report Type: Spontaneous
  Country: MA (occurrence: MA)
  Receive Date: 20250523
  Receipt Date: 20250523
  Transmission Date: 20250717
  Serious: Yes (Death, Hospitalization, Other)
  Sender: PFIZER
  Company Number: MA-PFIZER INC-PV202500059110

PATIENT
  Age: 4 Year
  Sex: Male

DRUGS (7)
  1. TIGECYCLINE [Suspect]
     Active Substance: TIGECYCLINE
     Indication: Nosocomial infection
     Dosage: 1.2 MG/KG, 2X/DAY (EVERY 12 HOURS)
  2. TIGECYCLINE [Suspect]
     Active Substance: TIGECYCLINE
     Indication: Bacteraemia
  3. COLISTIN [Suspect]
     Active Substance: COLISTIN
     Indication: Nosocomial infection
     Dosage: 1000000 IU/KG, DAILY
  4. COLISTIN [Suspect]
     Active Substance: COLISTIN
     Indication: Bacteraemia
  5. CEFTRIAXONE [Concomitant]
     Active Substance: CEFTRIAXONE
     Indication: Meningitis
  6. ACYCLOVIR [Concomitant]
     Active Substance: ACYCLOVIR
     Indication: Meningitis
  7. VORICONAZOLE [Concomitant]
     Active Substance: VORICONAZOLE
     Dosage: 4 MG/KG, 2X/DAY (EVERY 12 HOURS)

REACTIONS (3)
  - Drug ineffective for unapproved indication [Fatal]
  - Off label use [Unknown]
  - Off label use [Unknown]
